FAERS Safety Report 8531905-8 (Version None)
Quarter: 2012Q3

REPORT INFORMATION
  Report Type: 
  Country: None (occurrence: None)
  Receive Date: 20120723
  Receipt Date: 20120713
  Transmission Date: 20120928
  Serious: Yes (Death, Hospitalization)
  Sender: FDA-Public Use
  Company Number: US-BAYER-2012-059481

PATIENT
  Age: 57 Year
  Sex: Male
  Weight: 93.878 kg

DRUGS (1)
  1. NEXAVAR [Suspect]
     Indication: HEPATIC NEOPLASM MALIGNANT
     Dosage: 400 MG, DAILY
     Route: 048
     Dates: start: 20120604, end: 20120614

REACTIONS (5)
  - GASTROINTESTINAL HAEMORRHAGE [None]
  - DIARRHOEA [None]
  - DEHYDRATION [None]
  - RENAL FAILURE [None]
  - APHAGIA [None]
